FAERS Safety Report 11746547 (Version 8)
Quarter: 2021Q2

REPORT INFORMATION
  Report Type: Spontaneous
  Country: US (occurrence: US)
  Receive Date: 20151117
  Receipt Date: 20210517
  Transmission Date: 20210716
  Serious: Yes (Congenital Anomaly, Other)
  Sender: FDA-Public Use
  Company Number: PHEH2015US023755

PATIENT
  Sex: Male

DRUGS (2)
  1. ZOFRAN [Suspect]
     Active Substance: ONDANSETRON HYDROCHLORIDE
     Indication: FOETAL EXPOSURE DURING PREGNANCY
     Dosage: MOTHER DOSE: 4 MG, PRN
     Route: 064
  2. ONDANSETRON HYDROCHLORIDE. [Suspect]
     Active Substance: ONDANSETRON HYDROCHLORIDE
     Indication: FOETAL EXPOSURE DURING PREGNANCY
     Dosage: MOTHER^S DOSE: 4 MG, PRN
     Route: 064

REACTIONS (50)
  - Foetal exposure during pregnancy [Unknown]
  - Bronchial hyperreactivity [Recovering/Resolving]
  - Rhinitis [Unknown]
  - Conjunctivitis [Unknown]
  - Constipation [Unknown]
  - Heart disease congenital [Unknown]
  - Autism spectrum disorder [Unknown]
  - Injury [Unknown]
  - Anhedonia [Unknown]
  - Anxiety [Unknown]
  - Oral candidiasis [Unknown]
  - Retching [Unknown]
  - Dermatitis diaper [Unknown]
  - Wound [Unknown]
  - Upper respiratory tract infection [Unknown]
  - Eczema [Unknown]
  - Influenza [Unknown]
  - Abdominal pain [Unknown]
  - Social anxiety disorder [Unknown]
  - Bronchospasm [Unknown]
  - Learning disability [Unknown]
  - Otitis media [Recovering/Resolving]
  - Sinusitis [Unknown]
  - Back pain [Unknown]
  - Bronchiolitis [Recovering/Resolving]
  - Croup infectious [Unknown]
  - Pain [Unknown]
  - Emotional distress [Unknown]
  - Speech disorder [Unknown]
  - Asthma [Unknown]
  - Pyrexia [Unknown]
  - Oral herpes [Unknown]
  - Congenital anomaly [Unknown]
  - Cardiac murmur [Unknown]
  - Enuresis [Unknown]
  - Attention deficit hyperactivity disorder [Unknown]
  - Cardiac septal defect [Unknown]
  - Developmental delay [Unknown]
  - Gastrooesophageal reflux disease [Unknown]
  - Respiratory syncytial virus infection [Unknown]
  - Migraine [Unknown]
  - Multiple congenital abnormalities [Unknown]
  - Language disorder [Unknown]
  - Gastroenteritis viral [Unknown]
  - Diarrhoea [Unknown]
  - Decreased appetite [Unknown]
  - Headache [Unknown]
  - Acne [Unknown]
  - Dermatitis atopic [Unknown]
  - Pharyngitis [Unknown]
